FAERS Safety Report 22122545 (Version 2)
Quarter: 2023Q1

REPORT INFORMATION
  Report Type: Spontaneous
  Country: JP (occurrence: JP)
  Receive Date: 20230321
  Receipt Date: 20230331
  Transmission Date: 20230417
  Serious: Yes (Hospitalization, Other)
  Sender: FDA-Public Use
  Company Number: JP-MSD-2303JPN001816JAA

PATIENT
  Age: 73 Year
  Sex: Male

DRUGS (2)
  1. KEYTRUDA [Suspect]
     Active Substance: PEMBROLIZUMAB
     Indication: Bladder cancer
     Dosage: UNK
     Route: 065
  2. PREDNISOLONE [Concomitant]
     Active Substance: PREDNISOLONE
     Indication: Vogt-Koyanagi-Harada disease
     Dosage: UNK
     Route: 065

REACTIONS (2)
  - Adrenocorticotropic hormone deficiency [Recovering/Resolving]
  - Immune-mediated adrenal insufficiency [Recovering/Resolving]
